FAERS Safety Report 7183146-7 (Version None)
Quarter: 2010Q4

REPORT INFORMATION
  Report Type: 
  Country: None (occurrence: None)
  Receive Date: 20101222
  Receipt Date: 20100414
  Transmission Date: 20110411
  Serious: No
  Sender: FDA-Public Use
  Company Number: US-PFIZER INC-2010047652

PATIENT
  Age: 43 Year
  Sex: Male

DRUGS (9)
  1. HALCION [Suspect]
  2. AMBIEN [Suspect]
     Dosage: UNK
  3. AMBIEN [Suspect]
     Dosage: UNK
  4. AMBIEN [Suspect]
     Dosage: UNK
     Dates: end: 20100313
  5. AMBIEN [Suspect]
     Dosage: UNK
     Dates: start: 20100317
  6. LUNESTA [Suspect]
     Indication: INSOMNIA
     Dosage: 3 MG, HS
     Route: 048
     Dates: start: 20100314, end: 20100315
  7. LUNESTA [Suspect]
     Dosage: 6 MG, 1X
     Route: 048
     Dates: start: 20100316, end: 20100316
  8. ZYRTEC [Concomitant]
  9. CYMBALTA [Concomitant]

REACTIONS (4)
  - DRUG INEFFECTIVE [None]
  - DYSGEUSIA [None]
  - INSOMNIA [None]
  - NAUSEA [None]
